FAERS Safety Report 8011386-3 (Version None)
Quarter: 2011Q4

REPORT INFORMATION
  Report Type: 
  Country: None (occurrence: None)
  Receive Date: 20111228
  Receipt Date: 20111213
  Transmission Date: 20120403
  Serious: Yes (Hospitalization, Other)
  Sender: FDA-Public Use
  Company Number: BR-PFIZER INC-2011192223

PATIENT
  Age: 77 Year
  Sex: Female

DRUGS (5)
  1. ATENOLOL [Suspect]
     Indication: HYPERTENSION
     Dosage: 50 MG IN THE MORNING
     Route: 048
     Dates: start: 20110101
  2. BENICAR [Suspect]
     Indication: HYPERTENSION
     Dosage: 20 MG, 1X/DAY IN THE MORNING
     Route: 048
     Dates: end: 20110101
  3. CLOXAZOLAM [Suspect]
     Dosage: 1 MG AT NIGHT
     Route: 048
     Dates: start: 20110101
  4. BENICAR [Suspect]
     Dosage: 20 MG, 2X/DAY
     Route: 048
     Dates: start: 20110101
  5. SPIRONOLACTONE [Suspect]
     Dosage: 25 MG, UNK
     Route: 048
     Dates: start: 20110101

REACTIONS (8)
  - INTRAOCULAR PRESSURE INCREASED [None]
  - FATIGUE [None]
  - SENSATION OF HEAVINESS [None]
  - DRUG INEFFECTIVE [None]
  - CATARACT [None]
  - SOMNOLENCE [None]
  - MALAISE [None]
  - SPEECH DISORDER [None]
